FAERS Safety Report 18703043 (Version 7)
Quarter: 2021Q2

REPORT INFORMATION
  Report Type: Spontaneous
  Country: GB (occurrence: GB)
  Receive Date: 20210105
  Receipt Date: 20210628
  Transmission Date: 20210717
  Serious: Yes (Hospitalization, Other)
  Sender: FDA-Public Use
  Company Number: GB-MYLANLABS-2021M1000501

PATIENT
  Age: 64 Year
  Sex: Male
  Weight: 68 kg

DRUGS (8)
  1. GLYCEROL SUPPOSITORIES B.P. [Concomitant]
     Indication: CONSTIPATION
     Dosage: OD
     Route: 051
  2. MOVICOL [Concomitant]
     Active Substance: POLYETHYLENE GLYCOL 3350\POTASSIUM CHLORIDE\SODIUM BICARBONATE\SODIUM CHLORIDE
     Indication: CONSTIPATION
     Dosage: 25 MILLILITER,TDS
     Route: 048
  3. CLOZARIL [Suspect]
     Active Substance: CLOZAPINE
     Dosage: UNK
     Route: 048
     Dates: start: 20210105, end: 20210615
  4. CLOZARIL [Suspect]
     Active Substance: CLOZAPINE
     Indication: SCHIZOPHRENIA
     Dosage: 100 MG AM, 300 MG PM
     Route: 048
     Dates: start: 20201007
  5. GABAPENTIN. [Concomitant]
     Active Substance: GABAPENTIN
     Indication: NEURALGIA
     Dosage: 100 MILLIGRAM,TDS
     Route: 048
  6. LORAZEPAM. [Concomitant]
     Active Substance: LORAZEPAM
     Indication: AGITATION
     Dosage: 0.5 MILLIGRAM, BD
     Route: 048
  7. SENNA                              /00142201/ [Concomitant]
     Active Substance: SENNA LEAF
     Indication: CONSTIPATION
     Dosage: 7.5 MILLIGRAM,BD
     Route: 048
  8. PARACETAMOL [Concomitant]
     Active Substance: ACETAMINOPHEN
     Indication: PAIN
     Dosage: 1 GRAM,QDS PRN
     Route: 048

REACTIONS (10)
  - Treatment noncompliance [Unknown]
  - Lower respiratory tract infection bacterial [Unknown]
  - Emotional distress [Unknown]
  - Agitation [Unknown]
  - COVID-19 [Unknown]
  - Neutrophil count decreased [Recovered/Resolved]
  - Urinary tract infection [Unknown]
  - Mental impairment [Unknown]
  - Alcohol problem [Unknown]
  - Somnolence [Unknown]

NARRATIVE: CASE EVENT DATE: 2021
